FAERS Safety Report 5875137-0 (Version None)
Quarter: 2008Q3

REPORT INFORMATION
  Report Type: 
  Country: None (occurrence: None)
  Receive Date: 20080909
  Receipt Date: 20080902
  Transmission Date: 20090109
  Serious: Yes (Hospitalization)
  Sender: FDA-Public Use
  Company Number: B0535898A

PATIENT
  Age: 46 Year
  Sex: Female

DRUGS (1)
  1. AUGMENTIN '125' [Suspect]
     Indication: OTITIS EXTERNA
     Dates: start: 20080816, end: 20080816

REACTIONS (2)
  - ABDOMINAL PAIN UPPER [None]
  - VOMITING [None]
